FAERS Safety Report 4407570-8 (Version None)
Quarter: 2004Q3

REPORT INFORMATION
  Report Type: 
  Country: None (occurrence: None)
  Receive Date: 20040721
  Receipt Date: 20040707
  Transmission Date: 20050211
  Serious: Yes (Hospitalization)
  Sender: FDA-Public Use
  Company Number: 2004AP03501

PATIENT
  Sex: Male

DRUGS (1)
  1. NEXIUM [Suspect]
     Dosage: 40 MG DAILY PO
     Route: 048

REACTIONS (5)
  - ABDOMINAL PAIN UPPER [None]
  - DIZZINESS [None]
  - DRUG INEFFECTIVE [None]
  - HAEMATEMESIS [None]
  - VOMITING [None]
